FAERS Safety Report 20224955 (Version 9)
Quarter: 2025Q1

REPORT INFORMATION
  Report Type: Spontaneous
  Country: CA (occurrence: CA)
  Receive Date: 20211223
  Receipt Date: 20250305
  Transmission Date: 20250409
  Serious: Yes (Hospitalization, Disabling, Congenital Anomaly, Other)
  Sender: SANOFI AVENTIS
  Company Number: CA-TAKEDA-2021TUS000010

PATIENT
  Age: 80 Year
  Sex: Male
  Weight: 89 kg

DRUGS (224)
  1. INFLUENZA VIRUS VACCINE [Suspect]
     Active Substance: INFLUENZA VIRUS VACCINE
     Indication: Prophylaxis
     Route: 065
  2. INFLUENZA VIRUS VACCINE [Suspect]
     Active Substance: INFLUENZA VIRUS VACCINE
     Indication: Immunisation
  3. LEVOFLOXACIN [Suspect]
     Active Substance: LEVOFLOXACIN
     Indication: Product used for unknown indication
     Route: 065
  4. LEVOFLOXACIN [Suspect]
     Active Substance: LEVOFLOXACIN
     Indication: Prophylaxis
  5. LEVOFLOXACIN [Suspect]
     Active Substance: LEVOFLOXACIN
  6. LEVOFLOXACIN [Suspect]
     Active Substance: LEVOFLOXACIN
     Route: 065
  7. BUDESONIDE\FORMOTEROL FUMARATE [Suspect]
     Active Substance: BUDESONIDE\FORMOTEROL FUMARATE
     Indication: Asthma
     Dosage: 2 DF, BID
     Route: 055
  8. FLOMAX [Suspect]
     Active Substance: TAMSULOSIN HYDROCHLORIDE
     Indication: Product used for unknown indication
     Route: 065
  9. FLOMAX [Suspect]
     Active Substance: TAMSULOSIN HYDROCHLORIDE
     Indication: Product used for unknown indication
     Route: 065
  10. FLOMAX [Suspect]
     Active Substance: TAMSULOSIN HYDROCHLORIDE
     Indication: Product used for unknown indication
     Route: 065
  11. FLOMAX [Suspect]
     Active Substance: TAMSULOSIN HYDROCHLORIDE
     Route: 065
  12. FLOMAX [Suspect]
     Active Substance: TAMSULOSIN HYDROCHLORIDE
  13. FLOMAX [Suspect]
     Active Substance: TAMSULOSIN HYDROCHLORIDE
  14. ALBUTEROL SULFATE [Suspect]
     Active Substance: ALBUTEROL SULFATE
     Indication: Asthma
     Route: 065
  15. ALBUTEROL SULFATE [Suspect]
     Active Substance: ALBUTEROL SULFATE
     Indication: Asthma
     Route: 065
  16. ALBUTEROL SULFATE [Suspect]
     Active Substance: ALBUTEROL SULFATE
     Indication: Prophylaxis
  17. ALBUTEROL SULFATE [Suspect]
     Active Substance: ALBUTEROL SULFATE
  18. ALBUTEROL SULFATE [Suspect]
     Active Substance: ALBUTEROL SULFATE
  19. ACETYLCYSTEINE [Suspect]
     Active Substance: ACETYLCYSTEINE
     Indication: Product used for unknown indication
     Route: 055
  20. ACETYLCYSTEINE [Suspect]
     Active Substance: ACETYLCYSTEINE
     Indication: Product used for unknown indication
     Route: 065
  21. ACETYLCYSTEINE [Suspect]
     Active Substance: ACETYLCYSTEINE
     Route: 065
  22. ACETYLCYSTEINE [Suspect]
     Active Substance: ACETYLCYSTEINE
     Route: 055
  23. ACETYLCYSTEINE [Suspect]
     Active Substance: ACETYLCYSTEINE
  24. ACETYLCYSTEINE [Suspect]
     Active Substance: ACETYLCYSTEINE
  25. ACETYLCYSTEINE [Suspect]
     Active Substance: ACETYLCYSTEINE
  26. ACETYLCYSTEINE [Suspect]
     Active Substance: ACETYLCYSTEINE
  27. ACETYLCYSTEINE [Suspect]
     Active Substance: ACETYLCYSTEINE
  28. ACETYLCYSTEINE [Suspect]
     Active Substance: ACETYLCYSTEINE
  29. PANTOPRAZOLE [Suspect]
     Active Substance: PANTOPRAZOLE
     Indication: Product used for unknown indication
     Route: 065
  30. PANTOPRAZOLE [Suspect]
     Active Substance: PANTOPRAZOLE
     Indication: Product used for unknown indication
     Route: 065
  31. PANTOPRAZOLE [Suspect]
     Active Substance: PANTOPRAZOLE
     Route: 065
  32. PANTOPRAZOLE [Suspect]
     Active Substance: PANTOPRAZOLE
  33. PANTOPRAZOLE [Suspect]
     Active Substance: PANTOPRAZOLE
  34. PANTOPRAZOLE [Suspect]
     Active Substance: PANTOPRAZOLE
  35. PANTOPRAZOLE [Suspect]
     Active Substance: PANTOPRAZOLE
  36. PANTOPRAZOLE [Suspect]
     Active Substance: PANTOPRAZOLE
  37. PANTOPRAZOLE [Suspect]
     Active Substance: PANTOPRAZOLE
  38. PANTOPRAZOLE [Suspect]
     Active Substance: PANTOPRAZOLE
  39. ASPIRIN [Suspect]
     Active Substance: ASPIRIN
     Indication: Product used for unknown indication
     Route: 065
  40. ASPIRIN [Suspect]
     Active Substance: ASPIRIN
     Route: 065
  41. ASPIRIN [Suspect]
     Active Substance: ASPIRIN
  42. ASPIRIN [Suspect]
     Active Substance: ASPIRIN
  43. ASPIRIN [Suspect]
     Active Substance: ASPIRIN
  44. ASPIRIN [Suspect]
     Active Substance: ASPIRIN
  45. ASPIRIN [Suspect]
     Active Substance: ASPIRIN
  46. MELATONIN [Suspect]
     Active Substance: MELATONIN
     Indication: Product used for unknown indication
     Route: 065
  47. MELATONIN [Suspect]
     Active Substance: MELATONIN
     Indication: Product used for unknown indication
     Route: 065
  48. MELATONIN [Suspect]
     Active Substance: MELATONIN
     Route: 065
  49. MELATONIN [Suspect]
     Active Substance: MELATONIN
  50. MELATONIN [Suspect]
     Active Substance: MELATONIN
  51. NAPROXEN [Suspect]
     Active Substance: NAPROXEN
     Indication: Product used for unknown indication
     Route: 065
  52. NAPROXEN [Suspect]
     Active Substance: NAPROXEN
     Indication: Product used for unknown indication
     Route: 065
  53. NAPROXEN [Suspect]
     Active Substance: NAPROXEN
     Route: 065
  54. NAPROXEN [Suspect]
     Active Substance: NAPROXEN
  55. NAPROXEN [Suspect]
     Active Substance: NAPROXEN
  56. PREDNISONE [Suspect]
     Active Substance: PREDNISONE
     Indication: Asthma
     Route: 065
  57. PREDNISONE [Suspect]
     Active Substance: PREDNISONE
     Indication: Asthma
     Route: 065
  58. PREDNISONE [Suspect]
     Active Substance: PREDNISONE
     Route: 065
  59. PREDNISONE [Suspect]
     Active Substance: PREDNISONE
     Route: 065
  60. PREDNISONE [Suspect]
     Active Substance: PREDNISONE
  61. PREDNISONE [Suspect]
     Active Substance: PREDNISONE
  62. PREDNISONE [Suspect]
     Active Substance: PREDNISONE
  63. PREDNISONE [Suspect]
     Active Substance: PREDNISONE
  64. PREDNISONE [Suspect]
     Active Substance: PREDNISONE
  65. PREDNISONE [Suspect]
     Active Substance: PREDNISONE
  66. PREDNISONE [Suspect]
     Active Substance: PREDNISONE
  67. PREDNISONE [Suspect]
     Active Substance: PREDNISONE
  68. PREDNISONE [Suspect]
     Active Substance: PREDNISONE
  69. PREDNISONE [Suspect]
     Active Substance: PREDNISONE
  70. PREDNISONE [Suspect]
     Active Substance: PREDNISONE
  71. AMLODIPINE BESYLATE [Suspect]
     Active Substance: AMLODIPINE BESYLATE
     Indication: Product used for unknown indication
     Route: 065
  72. AMLODIPINE BESYLATE [Suspect]
     Active Substance: AMLODIPINE BESYLATE
  73. AMLODIPINE BESYLATE [Suspect]
     Active Substance: AMLODIPINE BESYLATE
  74. CICLESONIDE [Suspect]
     Active Substance: CICLESONIDE
     Indication: Asthma
     Route: 065
  75. CICLESONIDE [Suspect]
     Active Substance: CICLESONIDE
     Indication: Product used for unknown indication
     Route: 065
  76. CICLESONIDE [Suspect]
     Active Substance: CICLESONIDE
     Route: 065
  77. CICLESONIDE [Suspect]
     Active Substance: CICLESONIDE
     Route: 055
  78. CICLESONIDE [Suspect]
     Active Substance: CICLESONIDE
     Route: 055
  79. PREGABALIN [Suspect]
     Active Substance: PREGABALIN
     Indication: Product used for unknown indication
     Route: 065
  80. PREGABALIN [Suspect]
     Active Substance: PREGABALIN
     Route: 065
  81. PREGABALIN [Suspect]
     Active Substance: PREGABALIN
     Route: 065
  82. PREGABALIN [Suspect]
     Active Substance: PREGABALIN
  83. PREGABALIN [Suspect]
     Active Substance: PREGABALIN
  84. DOXYCYCLINE [Suspect]
     Active Substance: DOXYCYCLINE
     Indication: Product used for unknown indication
     Route: 065
  85. DOXYCYCLINE [Suspect]
     Active Substance: DOXYCYCLINE
     Route: 065
  86. DOXYCYCLINE [Suspect]
     Active Substance: DOXYCYCLINE
     Route: 065
  87. DOXYCYCLINE [Suspect]
     Active Substance: DOXYCYCLINE
  88. DOXYCYCLINE [Suspect]
     Active Substance: DOXYCYCLINE
  89. DOXYCYCLINE [Suspect]
     Active Substance: DOXYCYCLINE
  90. DOXYCYCLINE [Suspect]
     Active Substance: DOXYCYCLINE
  91. DOXYCYCLINE [Suspect]
     Active Substance: DOXYCYCLINE
  92. DOXYCYCLINE [Suspect]
     Active Substance: DOXYCYCLINE
  93. DOXYCYCLINE [Suspect]
     Active Substance: DOXYCYCLINE
  94. DOXYCYCLINE [Suspect]
     Active Substance: DOXYCYCLINE
  95. DOXYCYCLINE [Suspect]
     Active Substance: DOXYCYCLINE
  96. DOXYCYCLINE [Suspect]
     Active Substance: DOXYCYCLINE
  97. DOXYCYCLINE [Suspect]
     Active Substance: DOXYCYCLINE
  98. AZITHROMYCIN [Suspect]
     Active Substance: AZITHROMYCIN
     Indication: Product used for unknown indication
     Route: 065
  99. AZITHROMYCIN [Suspect]
     Active Substance: AZITHROMYCIN
  100. AZITHROMYCIN [Suspect]
     Active Substance: AZITHROMYCIN
  101. AZITHROMYCIN [Suspect]
     Active Substance: AZITHROMYCIN
  102. AZITHROMYCIN [Suspect]
     Active Substance: AZITHROMYCIN
  103. AZITHROMYCIN [Suspect]
     Active Substance: AZITHROMYCIN
  104. AZITHROMYCIN [Suspect]
     Active Substance: AZITHROMYCIN
  105. AZITHROMYCIN [Suspect]
     Active Substance: AZITHROMYCIN
  106. AZITHROMYCIN [Suspect]
     Active Substance: AZITHROMYCIN
  107. AZITHROMYCIN [Suspect]
     Active Substance: AZITHROMYCIN
  108. AZITHROMYCIN [Suspect]
     Active Substance: AZITHROMYCIN
  109. ROSUVASTATIN CALCIUM [Suspect]
     Active Substance: ROSUVASTATIN CALCIUM
     Indication: Product used for unknown indication
     Route: 048
  110. ROSUVASTATIN CALCIUM [Suspect]
     Active Substance: ROSUVASTATIN CALCIUM
     Route: 048
  111. ROSUVASTATIN CALCIUM [Suspect]
     Active Substance: ROSUVASTATIN CALCIUM
     Route: 048
  112. ROSUVASTATIN CALCIUM [Suspect]
     Active Substance: ROSUVASTATIN CALCIUM
     Route: 048
  113. ROSUVASTATIN CALCIUM [Suspect]
     Active Substance: ROSUVASTATIN CALCIUM
     Route: 048
  114. PANTOPRAZOLE SODIUM [Suspect]
     Active Substance: PANTOPRAZOLE SODIUM
     Indication: Product used for unknown indication
     Route: 065
  115. PANTOPRAZOLE SODIUM [Suspect]
     Active Substance: PANTOPRAZOLE SODIUM
  116. PANTOPRAZOLE SODIUM [Suspect]
     Active Substance: PANTOPRAZOLE SODIUM
  117. PANTOPRAZOLE SODIUM [Suspect]
     Active Substance: PANTOPRAZOLE SODIUM
     Indication: Product used for unknown indication
     Route: 065
  118. PANTOPRAZOLE SODIUM [Suspect]
     Active Substance: PANTOPRAZOLE SODIUM
     Route: 065
  119. PANTOPRAZOLE SODIUM [Suspect]
     Active Substance: PANTOPRAZOLE SODIUM
     Route: 065
  120. TIOTROPIUM BROMIDE [Suspect]
     Active Substance: TIOTROPIUM BROMIDE
     Indication: Asthma
  121. TIOTROPIUM BROMIDE [Suspect]
     Active Substance: TIOTROPIUM BROMIDE
     Dosage: 1 DF, QD
  122. TAMSULOSIN HYDROCHLORIDE [Suspect]
     Active Substance: TAMSULOSIN HYDROCHLORIDE
     Indication: Product used for unknown indication
  123. TAMSULOSIN HYDROCHLORIDE [Suspect]
     Active Substance: TAMSULOSIN HYDROCHLORIDE
  124. TAMSULOSIN HYDROCHLORIDE [Suspect]
     Active Substance: TAMSULOSIN HYDROCHLORIDE
  125. TAMSULOSIN HYDROCHLORIDE [Suspect]
     Active Substance: TAMSULOSIN HYDROCHLORIDE
  126. RAMIPRIL [Suspect]
     Active Substance: RAMIPRIL
     Indication: Product used for unknown indication
     Route: 048
  127. RAMIPRIL [Suspect]
     Active Substance: RAMIPRIL
     Route: 048
  128. RAMIPRIL [Suspect]
     Active Substance: RAMIPRIL
     Route: 048
  129. RAMIPRIL [Suspect]
     Active Substance: RAMIPRIL
     Route: 048
  130. RAMIPRIL [Suspect]
     Active Substance: RAMIPRIL
     Route: 048
  131. ASACOL [Suspect]
     Active Substance: MESALAMINE
     Indication: Product used for unknown indication
     Route: 065
  132. ASACOL [Suspect]
     Active Substance: MESALAMINE
     Indication: Product used for unknown indication
  133. ASACOL [Suspect]
     Active Substance: MESALAMINE
  134. ASACOL [Suspect]
     Active Substance: MESALAMINE
  135. ASACOL [Suspect]
     Active Substance: MESALAMINE
  136. MESALAMINE [Suspect]
     Active Substance: MESALAMINE
     Indication: Product used for unknown indication
     Route: 065
  137. MESALAMINE [Suspect]
     Active Substance: MESALAMINE
     Indication: Product used for unknown indication
  138. MESALAMINE [Suspect]
     Active Substance: MESALAMINE
  139. MESALAMINE [Suspect]
     Active Substance: MESALAMINE
  140. SYMBICORT [Suspect]
     Active Substance: BUDESONIDE\FORMOTEROL FUMARATE DIHYDRATE
     Indication: Product used for unknown indication
     Route: 065
  141. SYMBICORT [Suspect]
     Active Substance: BUDESONIDE\FORMOTEROL FUMARATE DIHYDRATE
     Indication: Asthma
     Route: 055
  142. SYMBICORT [Suspect]
     Active Substance: BUDESONIDE\FORMOTEROL FUMARATE DIHYDRATE
     Indication: Asthma
     Dosage: 2 DF, BID (2 DF TWO TIMES A DAY)
     Route: 055
  143. SYMBICORT [Suspect]
     Active Substance: BUDESONIDE\FORMOTEROL FUMARATE DIHYDRATE
     Dosage: 1 DF, QD
     Route: 055
  144. SYMBICORT [Suspect]
     Active Substance: BUDESONIDE\FORMOTEROL FUMARATE DIHYDRATE
     Route: 055
  145. LYRICA [Suspect]
     Active Substance: PREGABALIN
     Indication: Product used for unknown indication
     Route: 065
  146. LYRICA [Suspect]
     Active Substance: PREGABALIN
     Indication: Product used for unknown indication
     Route: 065
  147. LYRICA [Suspect]
     Active Substance: PREGABALIN
     Route: 065
  148. ACLIDINIUM BROMIDE\FORMOTEROL FUMARATE [Suspect]
     Active Substance: ACLIDINIUM BROMIDE\FORMOTEROL FUMARATE
     Indication: Product used for unknown indication
     Route: 055
  149. ACLIDINIUM BROMIDE\FORMOTEROL FUMARATE [Suspect]
     Active Substance: ACLIDINIUM BROMIDE\FORMOTEROL FUMARATE
     Indication: Asthma
     Route: 055
  150. ACLIDINIUM BROMIDE\FORMOTEROL FUMARATE [Suspect]
     Active Substance: ACLIDINIUM BROMIDE\FORMOTEROL FUMARATE
     Route: 055
  151. ACLIDINIUM BROMIDE\FORMOTEROL FUMARATE [Suspect]
     Active Substance: ACLIDINIUM BROMIDE\FORMOTEROL FUMARATE
     Indication: Product used for unknown indication
     Route: 055
  152. ACLIDINIUM BROMIDE\FORMOTEROL FUMARATE [Suspect]
     Active Substance: ACLIDINIUM BROMIDE\FORMOTEROL FUMARATE
     Route: 055
  153. ACLIDINIUM BROMIDE\FORMOTEROL FUMARATE [Suspect]
     Active Substance: ACLIDINIUM BROMIDE\FORMOTEROL FUMARATE
     Route: 065
  154. ACLIDINIUM BROMIDE\FORMOTEROL FUMARATE [Suspect]
     Active Substance: ACLIDINIUM BROMIDE\FORMOTEROL FUMARATE
     Route: 055
  155. ACLIDINIUM BROMIDE\FORMOTEROL FUMARATE [Suspect]
     Active Substance: ACLIDINIUM BROMIDE\FORMOTEROL FUMARATE
     Route: 055
  156. ACLIDINIUM BROMIDE\FORMOTEROL FUMARATE [Suspect]
     Active Substance: ACLIDINIUM BROMIDE\FORMOTEROL FUMARATE
     Route: 055
  157. ACLIDINIUM BROMIDE\FORMOTEROL FUMARATE [Suspect]
     Active Substance: ACLIDINIUM BROMIDE\FORMOTEROL FUMARATE
     Route: 055
  158. SPIRIVA [Suspect]
     Active Substance: TIOTROPIUM BROMIDE MONOHYDRATE
     Indication: Asthma
     Route: 065
  159. SPIRIVA [Suspect]
     Active Substance: TIOTROPIUM BROMIDE MONOHYDRATE
     Route: 065
  160. SPIRIVA [Suspect]
     Active Substance: TIOTROPIUM BROMIDE MONOHYDRATE
     Dosage: 1 DF, QD
     Route: 065
  161. SPIRIVA [Suspect]
     Active Substance: TIOTROPIUM BROMIDE MONOHYDRATE
     Dosage: 2 DF, QD
     Route: 065
  162. ALBUTEROL SULFATE [Suspect]
     Active Substance: ALBUTEROL SULFATE
     Indication: Asthma
     Route: 065
  163. ALBUTEROL SULFATE [Suspect]
     Active Substance: ALBUTEROL SULFATE
     Route: 065
  164. ALVESCO [Suspect]
     Active Substance: CICLESONIDE
     Indication: Asthma
     Route: 065
  165. ALVESCO [Suspect]
     Active Substance: CICLESONIDE
     Indication: Product used for unknown indication
  166. INFLUENZA VIRUS VACCINE [Suspect]
     Active Substance: INFLUENZA VIRUS VACCINE
     Indication: Prophylaxis
     Route: 045
  167. INFLUENZA VIRUS VACCINE [Suspect]
     Active Substance: INFLUENZA VIRUS VACCINE
     Indication: Product used for unknown indication
     Route: 065
  168. INFLUENZA VIRUS VACCINE [Suspect]
     Active Substance: INFLUENZA VIRUS VACCINE
     Route: 045
  169. PREVNAR 13 [Suspect]
     Active Substance: STREPTOCOCCUS PNEUMONIAE TYPE 1 CAPSULAR POLYSACCHARIDE DIPHTHERIA CRM197 PROTEIN CONJUGATE ANTIGEN\
     Indication: Prophylaxis
  170. PREVNAR 13 [Suspect]
     Active Substance: STREPTOCOCCUS PNEUMONIAE TYPE 1 CAPSULAR POLYSACCHARIDE DIPHTHERIA CRM197 PROTEIN CONJUGATE ANTIGEN\
  171. PREVNAR 13 [Suspect]
     Active Substance: STREPTOCOCCUS PNEUMONIAE TYPE 1 CAPSULAR POLYSACCHARIDE DIPHTHERIA CRM197 PROTEIN CONJUGATE ANTIGEN\
  172. PNEUMOCOCCAL 13-VALENT CONJUGATE VACCINE [Suspect]
     Active Substance: PNEUMOCOCCAL 13-VALENT CONJUGATE VACCINE
     Indication: Prophylaxis
     Route: 065
  173. PNEUMOCOCCAL 13-VALENT CONJUGATE VACCINE [Suspect]
     Active Substance: PNEUMOCOCCAL 13-VALENT CONJUGATE VACCINE
     Indication: Prophylaxis
  174. PNEUMOCOCCAL 13-VALENT CONJUGATE VACCINE [Suspect]
     Active Substance: PNEUMOCOCCAL 13-VALENT CONJUGATE VACCINE
  175. FLUMIST QUADRIVALENT [Suspect]
     Active Substance: INFLUENZA A VIRUS A/CALIFORNIA/7/2009 (H1N1) LIVE(ATTENUATED) ANTIGEN\INFLUENZA A VIRUS A/TEXAS/50/2
  176. MORNIFLUMATE [Suspect]
     Active Substance: MORNIFLUMATE
     Indication: Product used for unknown indication
     Route: 065
  177. MORNIFLUMATE [Suspect]
     Active Substance: MORNIFLUMATE
     Indication: Product used for unknown indication
  178. MORNIFLUMATE [Suspect]
     Active Substance: MORNIFLUMATE
  179. MORNIFLUMATE [Suspect]
     Active Substance: MORNIFLUMATE
  180. MORNIFLUMATE [Suspect]
     Active Substance: MORNIFLUMATE
  181. DOXYCYCLINE HYCLATE [Suspect]
     Active Substance: DOXYCYCLINE HYCLATE
     Indication: Product used for unknown indication
  182. DOXYCYCLINE HYCLATE [Suspect]
     Active Substance: DOXYCYCLINE HYCLATE
     Indication: Product used for unknown indication
  183. DOXYCYCLINE HYCLATE [Suspect]
     Active Substance: DOXYCYCLINE HYCLATE
  184. DOXYCYCLINE HYCLATE [Suspect]
     Active Substance: DOXYCYCLINE HYCLATE
  185. DOXYCYCLINE HYCLATE [Suspect]
     Active Substance: DOXYCYCLINE HYCLATE
  186. DOXYCYCLINE HYCLATE [Suspect]
     Active Substance: DOXYCYCLINE HYCLATE
  187. TAMSULOSIN [Suspect]
     Active Substance: TAMSULOSIN
     Indication: Product used for unknown indication
  188. NAPROXEN SODIUM [Suspect]
     Active Substance: NAPROXEN SODIUM
     Indication: Product used for unknown indication
  189. NAPROXEN SODIUM [Suspect]
     Active Substance: NAPROXEN SODIUM
  190. NAPROXEN SODIUM [Suspect]
     Active Substance: NAPROXEN SODIUM
  191. NAPROXEN SODIUM [Suspect]
     Active Substance: NAPROXEN SODIUM
  192. NAPROXEN SODIUM [Suspect]
     Active Substance: NAPROXEN SODIUM
  193. NAPROXEN SODIUM [Suspect]
     Active Substance: NAPROXEN SODIUM
  194. NAPROXEN SODIUM [Suspect]
     Active Substance: NAPROXEN SODIUM
  195. NAPROXEN SODIUM [Suspect]
     Active Substance: NAPROXEN SODIUM
  196. NAPROXEN SODIUM [Suspect]
     Active Substance: NAPROXEN SODIUM
  197. NAPROXEN SODIUM [Suspect]
     Active Substance: NAPROXEN SODIUM
  198. NAPROXEN SODIUM [Suspect]
     Active Substance: NAPROXEN SODIUM
  199. NAPROXEN SODIUM [Suspect]
     Active Substance: NAPROXEN SODIUM
  200. NAPROXEN SODIUM [Suspect]
     Active Substance: NAPROXEN SODIUM
  201. NAPROXEN SODIUM [Suspect]
     Active Substance: NAPROXEN SODIUM
  202. NAPROXEN SODIUM [Suspect]
     Active Substance: NAPROXEN SODIUM
  203. NAPROXEN SODIUM [Suspect]
     Active Substance: NAPROXEN SODIUM
  204. AMLODIPINE MALEATE [Suspect]
     Active Substance: AMLODIPINE MALEATE
     Indication: Product used for unknown indication
  205. AMLODIPINE MALEATE [Suspect]
     Active Substance: AMLODIPINE MALEATE
  206. AMLODIPINE MALEATE [Suspect]
     Active Substance: AMLODIPINE MALEATE
  207. AMLODIPINE MALEATE [Suspect]
     Active Substance: AMLODIPINE MALEATE
  208. AMLODIPINE MALEATE [Suspect]
     Active Substance: AMLODIPINE MALEATE
  209. AZITHROMYCIN DIHYDRATE [Suspect]
     Active Substance: AZITHROMYCIN DIHYDRATE
     Indication: Product used for unknown indication
  210. AZITHROMYCIN DIHYDRATE [Suspect]
     Active Substance: AZITHROMYCIN DIHYDRATE
     Indication: Product used for unknown indication
  211. AZITHROMYCIN DIHYDRATE [Suspect]
     Active Substance: AZITHROMYCIN DIHYDRATE
  212. AZITHROMYCIN DIHYDRATE [Suspect]
     Active Substance: AZITHROMYCIN DIHYDRATE
  213. BUDESONIDE [Suspect]
     Active Substance: BUDESONIDE
     Indication: Asthma
  214. BUDESONIDE [Suspect]
     Active Substance: BUDESONIDE
  215. BUDESONIDE [Suspect]
     Active Substance: BUDESONIDE
  216. TUDORZA PRESSAIR [Suspect]
     Active Substance: ACLIDINIUM BROMIDE
     Indication: Product used for unknown indication
  217. TUDORZA PRESSAIR [Suspect]
     Active Substance: ACLIDINIUM BROMIDE
  218. TIOTROPIUM BROMIDE MONOHYDRATE [Suspect]
     Active Substance: TIOTROPIUM BROMIDE MONOHYDRATE
     Indication: Asthma
     Dosage: 2 DF, QD
  219. TIOTROPIUM BROMIDE MONOHYDRATE [Suspect]
     Active Substance: TIOTROPIUM BROMIDE MONOHYDRATE
     Dosage: 1 DF, QD
  220. TIOTROPIUM BROMIDE MONOHYDRATE [Suspect]
     Active Substance: TIOTROPIUM BROMIDE MONOHYDRATE
  221. AMLODIPINE MESYLATE [Suspect]
     Active Substance: AMLODIPINE MESYLATE
     Indication: Product used for unknown indication
  222. AMLODIPINE MESYLATE [Suspect]
     Active Substance: AMLODIPINE MESYLATE
  223. ACLIDINIUM BROMIDE [Suspect]
     Active Substance: ACLIDINIUM BROMIDE
     Indication: Product used for unknown indication
     Route: 065
  224. ACLIDINIUM BROMIDE [Suspect]
     Active Substance: ACLIDINIUM BROMIDE

REACTIONS (23)
  - Gastrooesophageal reflux disease [Unknown]
  - Hypertension [Unknown]
  - Congenital hiatus hernia [Unknown]
  - Bronchiectasis [Unknown]
  - Dyspnoea [Unknown]
  - Breath sounds abnormal [Unknown]
  - Micturition urgency [Unknown]
  - Coronary artery disease [Unknown]
  - Full blood count abnormal [Unknown]
  - Joint injury [Unknown]
  - Asthma [Unknown]
  - Benign prostatic hyperplasia [Unknown]
  - Dyspnoea exertional [Unknown]
  - Obstructive airways disorder [Unknown]
  - Hypercholesterolaemia [Unknown]
  - Chronic obstructive pulmonary disease [Unknown]
  - Malignant melanoma in situ [Unknown]
  - Transient ischaemic attack [Unknown]
  - Productive cough [Unknown]
  - Loss of personal independence in daily activities [Unknown]
  - Wheezing [Unknown]
  - Therapeutic product effect incomplete [Unknown]
  - Off label use [Unknown]
